FAERS Safety Report 5216553-X (Version None)
Quarter: 2007Q1

REPORT INFORMATION
  Report Type: 
  Country: None (occurrence: None)
  Receive Date: 20070118
  Receipt Date: 20070108
  Transmission Date: 20070707
  Serious: Yes (Hospitalization)
  Sender: FDA-Public Use
  Company Number: 111581ISR

PATIENT
  Age: 2 Year
  Sex: Male

DRUGS (14)
  1. ETOPOSIDE [Suspect]
     Indication: NEUROBLASTOMA
     Dosage: 130 MG INTRAVENOUS
     Route: 042
     Dates: start: 20060517, end: 20060518
  2. CARBOPLATIN [Suspect]
     Indication: NEUROBLASTOMA
     Dosage: 560 MG INTRAVENOUS
     Route: 042
     Dates: start: 20060517, end: 20060517
  3. VINCRISTINE SULFATE [Suspect]
     Indication: NEUROBLASTOMA
     Dosage: 1.1 MG INTRAVENOUS
     Route: 042
     Dates: start: 20060517, end: 20060517
  4. METOPIMAZINE [Suspect]
     Dosage: INTRAVENOUS
     Route: 042
     Dates: start: 20060517, end: 20060522
  5. METOPIMAZINE [Suspect]
     Dosage: INTRAVENOUS
     Route: 042
     Dates: start: 20060527
  6. LENOGRASTIM [Suspect]
     Dates: start: 20060520, end: 20060522
  7. PARACETAMOL [Suspect]
     Dosage: 1200 MG INTRAVENOUS
     Route: 042
     Dates: start: 20060507, end: 20060522
  8. BACTRIM [Suspect]
     Dosage: ORAL
     Route: 048
     Dates: start: 20060517
  9. LUGOL CAP [Suspect]
     Dosage: ORAL
     Route: 048
     Dates: start: 20060509, end: 20060518
  10. CODEINE [Suspect]
     Dosage: ORAL
     Route: 048
     Dates: start: 20060507, end: 20060520
  11. NALBUPHINE HCL [Suspect]
     Dates: start: 20060522
  12. ONDANSETRON HCL [Concomitant]
  13. HYDROXYZINE HYDROCHLORIDE [Concomitant]
  14. IBUPROFEN [Concomitant]

REACTIONS (10)
  - CHOLANGITIS [None]
  - CYTOLYTIC HEPATITIS [None]
  - DEHYDRATION [None]
  - ENTEROVIRUS INFECTION [None]
  - EPSTEIN-BARR VIRUS INFECTION [None]
  - HEPATIC FIBROSIS [None]
  - HEPATOTOXICITY [None]
  - OVERDOSE [None]
  - RENAL FAILURE ACUTE [None]
  - RENAL TUBULAR NECROSIS [None]
